FAERS Safety Report 8613311-0 (Version None)
Quarter: 2012Q3

REPORT INFORMATION
  Report Type: 
  Country: None (occurrence: None)
  Receive Date: 20120822
  Receipt Date: 20120806
  Transmission Date: 20120928
  Serious: Yes (Hospitalization, Other)
  Sender: FDA-Public Use
  Company Number: US-009507513-1110USA01999

PATIENT

DRUGS (1)
  1. FOSAMAX [Suspect]
     Indication: OSTEOPOROSIS
     Dosage: 70 MG, UNK
     Route: 048
     Dates: start: 19980301, end: 20081201

REACTIONS (10)
  - BLOOD CHOLESTEROL INCREASED [None]
  - FALL [None]
  - HYPERTENSION [None]
  - TRANSFUSION [None]
  - FEMUR FRACTURE [None]
  - UTERINE CANCER [None]
  - THYROID DISORDER [None]
  - JOINT DISLOCATION [None]
  - OPEN REDUCTION OF FRACTURE [None]
  - POST PROCEDURAL INFECTION [None]
